FAERS Safety Report 9728495 (Version 4)
Quarter: 2015Q1

REPORT INFORMATION
  Report Type: Report from Study
  Country: CN (occurrence: CN)
  Receive Date: 20131204
  Receipt Date: 20150303
  Transmission Date: 20150721
  Serious: Yes (Death, Hospitalization, Other)
  Sender: FDA-Public Use
  Company Number: CN-ASTELLAS-2013US012559

PATIENT
  Age: 83 Year
  Sex: Female

DRUGS (1)
  1. ERLOTINIB [Suspect]
     Active Substance: ERLOTINIB
     Indication: NON-SMALL CELL LUNG CANCER
     Route: 048
     Dates: start: 20130820

REACTIONS (6)
  - Pleural effusion [Unknown]
  - Fall [Unknown]
  - Nasopharyngitis [Unknown]
  - Lower limb fracture [Unknown]
  - Gastric haemorrhage [Fatal]
  - Movement disorder [Unknown]

NARRATIVE: CASE EVENT DATE: 20140619
